FAERS Safety Report 13236756 (Version 3)
Quarter: 2017Q1

REPORT INFORMATION
  Report Type: Report from Study
  Country: US (occurrence: US)
  Receive Date: 20170215
  Receipt Date: 20170316
  Transmission Date: 20170428
  Serious: Yes (Hospitalization)
  Sender: FDA-Public Use
  Company Number: US-PFIZER INC-2017063708

PATIENT
  Age: 63 Year
  Sex: Female
  Weight: 49 kg

DRUGS (16)
  1. OXYCODONE [Suspect]
     Active Substance: OXYCODONE
     Dosage: 10 MG, BID
     Route: 048
     Dates: start: 20160922, end: 20160924
  2. OXYCODONE [Suspect]
     Active Substance: OXYCODONE
     Dosage: 10 MG, ONCE PER DAY
     Route: 048
     Dates: start: 20160925
  3. OXYCODONE [Suspect]
     Active Substance: OXYCODONE
     Dosage: 10 MG, EVERY 8 HOURS
     Route: 048
     Dates: start: 20160830
  4. GABAPENTIN. [Suspect]
     Active Substance: GABAPENTIN
     Indication: NEURALGIA
     Dosage: 100 MG, UNK
     Route: 048
     Dates: start: 20160805
  5. GABAPENTIN. [Suspect]
     Active Substance: GABAPENTIN
     Dosage: 200 MG, TID
     Route: 048
     Dates: start: 20160810
  6. OXYCODONE [Suspect]
     Active Substance: OXYCODONE
     Indication: PAIN
     Dosage: 10 MG, BID
     Route: 048
     Dates: start: 20160726
  7. GABAPENTIN. [Suspect]
     Active Substance: GABAPENTIN
     Dosage: 300 MG, 3X/DAY
     Route: 048
     Dates: start: 20160816
  8. GABAPENTIN. [Suspect]
     Active Substance: GABAPENTIN
     Dosage: 300 MG, TID
     Route: 048
     Dates: start: 20160922
  9. LORAZEPAM. [Suspect]
     Active Substance: LORAZEPAM
     Indication: INSOMNIA
  10. AFATINIB [Suspect]
     Active Substance: AFATINIB
     Indication: METASTATIC CARCINOMA OF THE BLADDER
     Dosage: 40 MG, 1X/DAY QD CYCLE: 28 DAYS
     Route: 048
     Dates: start: 20160803
  11. GABAPENTIN. [Suspect]
     Active Substance: GABAPENTIN
     Dosage: 100 MG, TID
     Route: 048
     Dates: start: 20160913
  12. AFATINIB [Suspect]
     Active Substance: AFATINIB
     Dosage: 40 MG, 1X/DAY QD CYCLE: 28 DAYS
     Route: 048
     Dates: start: 20160902, end: 20160917
  13. LORAZEPAM. [Suspect]
     Active Substance: LORAZEPAM
     Indication: ANXIETY
  14. LORAZEPAM. [Suspect]
     Active Substance: LORAZEPAM
     Indication: NAUSEA
     Dosage: 0.5 MG, PRN
     Route: 048
     Dates: start: 20160810
  15. ROXICODONE [Suspect]
     Active Substance: OXYCODONE HYDROCHLORIDE
     Indication: PAIN
     Dosage: 10 MG PRN
     Route: 048
     Dates: start: 20160922
  16. ROXICODONE [Suspect]
     Active Substance: OXYCODONE HYDROCHLORIDE
     Dosage: 5MG TABLET PRN
     Route: 048

REACTIONS (3)
  - Dehydration [Not Recovered/Not Resolved]
  - Fatigue [Not Recovered/Not Resolved]
  - Muscular weakness [Not Recovered/Not Resolved]

NARRATIVE: CASE EVENT DATE: 20160919
